FAERS Safety Report 16119466 (Version 1)
Quarter: 2019Q1

REPORT INFORMATION
  Report Type: Report from Study
  Country: IT (occurrence: IT)
  Receive Date: 20190326
  Receipt Date: 20190326
  Transmission Date: 20190418
  Serious: Yes (Other)
  Sender: FDA-Public Use
  Company Number: IT-TEVA-2019-IT-1028081

PATIENT
  Age: 71 Year
  Sex: Female

DRUGS (3)
  1. DOXIFLURIDINE [Concomitant]
     Active Substance: DOXIFLURIDINE
     Indication: COLON CANCER
     Dosage: 640 MILLIGRAM DAILY;
     Route: 042
     Dates: start: 20190221, end: 20190221
  2. IRINOTECAN [Suspect]
     Active Substance: IRINOTECAN
     Indication: COLON CANCER
     Route: 042
     Dates: start: 20190221, end: 20190221
  3. FLUOROURACIL. [Concomitant]
     Active Substance: FLUOROURACIL
     Indication: COLON CANCER
     Route: 040
     Dates: start: 20190221, end: 20190221

REACTIONS (1)
  - Throat tightness [Recovered/Resolved]

NARRATIVE: CASE EVENT DATE: 20190221
